FAERS Safety Report 4573958-8 (Version None)
Quarter: 2005Q1

REPORT INFORMATION
  Report Type: 
  Country: None (occurrence: None)
  Receive Date: 20050204
  Receipt Date: 20050120
  Transmission Date: 20050727
  Serious: Yes (Death, Hospitalization)
  Sender: FDA-Public Use
  Company Number: 8007030

PATIENT
  Age: 84 Year
  Sex: Male

DRUGS (13)
  1. KEPPRA [Suspect]
     Indication: CONVULSION PROPHYLAXIS
     Dosage: 1000 MG PO
     Route: 048
     Dates: start: 20020801, end: 20021001
  2. COUMADIN [Suspect]
     Indication: HEART VALVE REPLACEMENT
     Dosage: PO
     Route: 048
  3. COUMADIN [Suspect]
     Indication: HEART VALVE REPLACEMENT
     Dosage: 7.5 MG PO
     Route: 048
     Dates: start: 20021001
  4. ZOLOFT [Concomitant]
  5. LISINOPRIL [Concomitant]
  6. ASPIRIN [Concomitant]
  7. ATENOLOL [Concomitant]
  8. COLACE [Concomitant]
  9. PEPCID [Concomitant]
  10. LASIX [Concomitant]
  11. TYLENOL [Concomitant]
  12. SENNA [Concomitant]
  13. K-DUR 10 [Concomitant]

REACTIONS (20)
  - ANXIETY [None]
  - CONFUSIONAL STATE [None]
  - DEHYDRATION [None]
  - DEPRESSION [None]
  - DIZZINESS [None]
  - DRUG INTERACTION [None]
  - EPISTAXIS [None]
  - ESCHERICHIA INFECTION [None]
  - GASTROINTESTINAL ARTERIOVENOUS MALFORMATION [None]
  - GASTROINTESTINAL HAEMORRHAGE [None]
  - GENERAL PHYSICAL HEALTH DETERIORATION [None]
  - INTERNATIONAL NORMALISED RATIO INCREASED [None]
  - MALNUTRITION [None]
  - OESOPHAGEAL DISORDER [None]
  - ORAL INTAKE REDUCED [None]
  - PHARYNGOESOPHAGEAL DIVERTICULUM [None]
  - PNEUMONIA [None]
  - SPUTUM CULTURE POSITIVE [None]
  - SUBDURAL HAEMATOMA [None]
  - TRACHEAL HAEMORRHAGE [None]
